FAERS Safety Report 8429666-6 (Version None)
Quarter: 2012Q2

REPORT INFORMATION
  Report Type: 
  Country: None (occurrence: None)
  Receive Date: 20120612
  Receipt Date: 20120608
  Transmission Date: 20120825
  Serious: Yes (Hospitalization, Congenital Anomaly, Other)
  Sender: FDA-Public Use
  Company Number: US-PFIZER INC-2011138470

PATIENT
  Sex: Male

DRUGS (8)
  1. ZOLOFT [Suspect]
     Indication: DEPRESSION
     Dosage: UNK
     Route: 064
     Dates: start: 20070912, end: 20071215
  2. ZOLOFT [Suspect]
     Dosage: UNK
     Route: 064
     Dates: start: 20080117
  3. VISTARIL [Suspect]
     Indication: DEPRESSION
     Dosage: UNK
     Dates: start: 20070807
  4. PAXIL [Suspect]
     Indication: DEPRESSION
     Dosage: UNK
     Dates: start: 20070807
  5. PAXIL [Suspect]
     Indication: ANXIETY
     Dosage: UNK
     Route: 064
     Dates: start: 20070201, end: 20071001
  6. ZOLOFT [Suspect]
     Indication: ANXIETY
     Dosage: UNK
     Route: 064
     Dates: start: 20070807
  7. MULTI-VITAMINS [Concomitant]
     Dosage: UNK
     Route: 064
     Dates: start: 20070807
  8. VISTARIL [Suspect]
     Indication: ANXIETY
     Dosage: UNK
     Route: 064
     Dates: start: 20070201

REACTIONS (21)
  - PULMONARY ARTERIAL HYPERTENSION [None]
  - RENAL DYSPLASIA [None]
  - SPINE MALFORMATION [None]
  - PULMONARY VALVE STENOSIS CONGENITAL [None]
  - FAILURE TO THRIVE [None]
  - ACUTE RESPIRATORY FAILURE [None]
  - VENTRICULAR DYSFUNCTION [None]
  - FOETAL EXPOSURE DURING PREGNANCY [None]
  - HEART VALVE STENOSIS [None]
  - HYPOXIA [None]
  - BONE DISORDER [None]
  - PULMONARY HYPOPLASIA [None]
  - PULMONARY APLASIA [None]
  - VACTERL SYNDROME [None]
  - PELVIC KIDNEY [None]
  - ASTHMA [None]
  - DEXTROCARDIA [None]
  - HEMIVERTEBRA [None]
  - GROSS MOTOR DELAY [None]
  - RENAL APLASIA [None]
  - RIB DEFORMITY [None]
